FAERS Safety Report 18433433 (Version 2)
Quarter: 2020Q4

REPORT INFORMATION
  Report Type: Spontaneous
  Country: US (occurrence: US)
  Receive Date: 20201027
  Receipt Date: 20201224
  Transmission Date: 20210114
  Serious: Yes (Hospitalization)
  Sender: FDA-Public Use
  Company Number: US-TAKEDA-US202034617

PATIENT
  Sex: Female
  Weight: 113.38 kg

DRUGS (25)
  1. NORMAL SALINE [Concomitant]
     Active Substance: SODIUM CHLORIDE
  2. EPINEPHRINE. [Concomitant]
     Active Substance: EPINEPHRINE
  3. MELOXICAM. [Concomitant]
     Active Substance: MELOXICAM
  4. HYQVIA [Suspect]
     Active Substance: HUMAN IMMUNOGLOBULIN G\HYALURONIDASE RECOMBINANT HUMAN
     Indication: HYPOGAMMAGLOBULINAEMIA
  5. MONTELUKAST [Concomitant]
     Active Substance: MONTELUKAST SODIUM
  6. TRAMADOL. [Concomitant]
     Active Substance: TRAMADOL
  7. N-ACETYL-L-CYSTEINE [Concomitant]
     Active Substance: ACETYLCYSTEINE
  8. MUCINEX [Concomitant]
     Active Substance: GUAIFENESIN
  9. IPRATROPIUM/ALBUTEROL [Concomitant]
     Active Substance: ALBUTEROL\IPRATROPIUM
  10. METFORMIN [Concomitant]
     Active Substance: METFORMIN HYDROCHLORIDE
  11. THEOPHYLLINE [Concomitant]
     Active Substance: THEOPHYLLINE ANHYDROUS
  12. PEPCID [Concomitant]
     Active Substance: FAMOTIDINE
  13. CITRACAL [CALCIUM CITRATE] [Concomitant]
     Active Substance: CALCIUM CITRATE
  14. BENZONATATE. [Concomitant]
     Active Substance: BENZONATATE
  15. HYQVIA [Suspect]
     Active Substance: HUMAN IMMUNOGLOBULIN G\HYALURONIDASE RECOMBINANT HUMAN
     Indication: IMMUNODEFICIENCY
     Dosage: 45 GRAM, Q4WEEKS
     Route: 058
     Dates: start: 20190225
  16. ADVAIR HFA [Concomitant]
     Active Substance: FLUTICASONE PROPIONATE\SALMETEROL XINAFOATE
  17. INCRUSE ELLIPTA [Concomitant]
     Active Substance: UMECLIDINIUM BROMIDE
  18. ALLEGRA [Concomitant]
     Active Substance: FEXOFENADINE HYDROCHLORIDE
  19. LIDOCAINE. [Concomitant]
     Active Substance: LIDOCAINE
  20. ATORVASTATIN [Concomitant]
     Active Substance: ATORVASTATIN
  21. AZITHROMYCIN ANHYDROUS. [Concomitant]
     Active Substance: AZITHROMYCIN ANHYDROUS
  22. IBUPROFEN. [Concomitant]
     Active Substance: IBUPROFEN
  23. ZYRTEC [Concomitant]
     Active Substance: CETIRIZINE HYDROCHLORIDE
  24. HYQVIA [Suspect]
     Active Substance: HUMAN IMMUNOGLOBULIN G\HYALURONIDASE RECOMBINANT HUMAN
     Indication: OSTEOARTHRITIS
  25. PROAIR [FLUTICASONE PROPIONATE] [Concomitant]
     Active Substance: FLUTICASONE PROPIONATE

REACTIONS (2)
  - Chronic obstructive pulmonary disease [Unknown]
  - Cataract operation [Unknown]
